FAERS Safety Report 15524584 (Version 1)
Quarter: 2018Q4

REPORT INFORMATION
  Report Type: Spontaneous
  Country: US (occurrence: US)
  Receive Date: 20181018
  Receipt Date: 20181018
  Transmission Date: 20190205
  Serious: No
  Sender: FDA-Public Use
  Company Number: US-PFIZER INC-2018422500

PATIENT
  Age: 46 Year
  Sex: Female
  Weight: 119.27 kg

DRUGS (1)
  1. IBRANCE [Suspect]
     Active Substance: PALBOCICLIB
     Indication: BREAST CANCER METASTATIC
     Dosage: 125 MG, CYCLIC (DAYS 1-21  EVERY 28 DAYS)
     Route: 048
     Dates: start: 20181004

REACTIONS (1)
  - Decreased appetite [Unknown]
